FAERS Safety Report 7041760-3 (Version None)
Quarter: 2010Q4

REPORT INFORMATION
  Report Type: 
  Country: None (occurrence: None)
  Receive Date: 20101007
  Receipt Date: 20100927
  Transmission Date: 20110411
  Serious: Yes (Hospitalization)
  Sender: FDA-Public Use
  Company Number: TR-001884

PATIENT
  Age: 33 Year
  Sex: Female

DRUGS (4)
  1. PUREGON /01348901/ (FOLLITROPIN BETA) POWDER FOR SOLUTION FOR INJECTIO [Suspect]
     Indication: IN VITRO FERTILISATION
     Dosage: 150 IU, 225 IU
     Route: 058
     Dates: start: 20100312, end: 20100316
  2. PUREGON /01348901/ (FOLLITROPIN BETA) POWDER FOR SOLUTION FOR INJECTIO [Suspect]
     Indication: IN VITRO FERTILISATION
     Dosage: 150 IU, 225 IU
     Route: 058
     Dates: start: 20100317, end: 20100321
  3. ORGALUTRAN (GANIRELIX ACETATE) [Concomitant]
  4. PROGESTERONE [Concomitant]

REACTIONS (2)
  - ABORTION SPONTANEOUS [None]
  - DRUG EXPOSURE DURING PREGNANCY [None]
